FAERS Safety Report 18194890 (Version 1)
Quarter: 2020Q3

REPORT INFORMATION
  Report Type: Spontaneous
  Country: US (occurrence: US)
  Receive Date: 20200826
  Receipt Date: 20200826
  Transmission Date: 20201103
  Serious: No
  Sender: FDA-Public Use
  Company Number: US-NOVAST LABORATORIES LTD.-2019NOV000311

PATIENT
  Sex: Female

DRUGS (1)
  1. JULEBER [Suspect]
     Active Substance: DESOGESTREL\ETHINYL ESTRADIOL
     Indication: MENSTRUATION IRREGULAR
     Dosage: 1 DOSAGE FORM, QD
     Route: 048
     Dates: end: 201908

REACTIONS (5)
  - Product use in unapproved indication [Unknown]
  - Menstruation irregular [Unknown]
  - Hypomenorrhoea [Unknown]
  - Product dose omission issue [Unknown]
  - Product packaging issue [Unknown]
